FAERS Safety Report 5380082-3 (Version None)
Quarter: 2007Q3

REPORT INFORMATION
  Report Type: 
  Country: None (occurrence: None)
  Receive Date: 20070706
  Receipt Date: 20070419
  Transmission Date: 20080115
  Serious: No
  Sender: FDA-Public Use
  Company Number: A0648008A

PATIENT
  Age: 60 Year
  Sex: Female

DRUGS (5)
  1. TYKERB [Suspect]
     Indication: BREAST CANCER
     Dosage: 1250MG PER DAY
     Route: 048
     Dates: start: 20070417
  2. XELODA [Concomitant]
     Dosage: 2000MG TWICE PER DAY
     Route: 065
  3. IMODIUM [Concomitant]
  4. COMPAZINE [Concomitant]
  5. CELEXA [Concomitant]

REACTIONS (7)
  - CHEST PAIN [None]
  - DIARRHOEA [None]
  - DIZZINESS [None]
  - FATIGUE [None]
  - MUSCULOSKELETAL PAIN [None]
  - NAUSEA [None]
  - VOMITING [None]
